FAERS Safety Report 14404350 (Version 2)
Quarter: 2018Q2

REPORT INFORMATION
  Report Type: Not Available
  Country: US (occurrence: US)
  Receive Date: 20180117
  Receipt Date: 20180605
  Transmission Date: 20180711
  Serious: No
  Sender: FDA-Public Use
  Company Number: US-NEUROCRINE BIOSCIENCES INC.-2017NBI01807

PATIENT
  Age: 68 Year
  Sex: Male

DRUGS (3)
  1. INGREZZA [Suspect]
     Active Substance: VALBENAZINE
     Route: 048
     Dates: start: 20171121, end: 20171204
  2. INGREZZA [Suspect]
     Active Substance: VALBENAZINE
     Indication: TARDIVE DYSKINESIA
     Route: 048
     Dates: start: 20171010, end: 201711
  3. STELAZINE [Concomitant]
     Active Substance: TRIFLUOPERAZINE HYDROCHLORIDE
     Route: 048
     Dates: start: 2005

REACTIONS (4)
  - Abdominal discomfort [Recovered/Resolved]
  - Somnolence [Recovered/Resolved]
  - Vomiting [Recovered/Resolved]
  - Nausea [Recovered/Resolved]

NARRATIVE: CASE EVENT DATE: 201711
